FAERS Safety Report 5850888-2 (Version None)
Quarter: 2008Q3

REPORT INFORMATION
  Report Type: 
  Country: None (occurrence: None)
  Receive Date: 20080818
  Receipt Date: 20080801
  Transmission Date: 20090109
  Serious: Yes (Death)
  Sender: FDA-Public Use
  Company Number: 8035859

PATIENT
  Age: 48 Year
  Sex: Female

DRUGS (7)
  1. PREDNISOLONE [Suspect]
     Indication: AUTOIMMUNE HEPATITIS
     Dosage: 20 MG /D
     Dates: start: 20050101, end: 20050801
  2. PREDNISOLONE [Suspect]
     Indication: AUTOIMMUNE HEPATITIS
     Dates: start: 20051001
  3. PREDNISOLONE [Suspect]
     Indication: AUTOIMMUNE HEPATITIS
     Dosage: 1 MG/KG /D
     Dates: start: 20051001, end: 20050101
  4. PREDNISOLONE [Suspect]
     Indication: AUTOIMMUNE HEPATITIS
     Dosage: 1 G /D
     Dates: start: 20050101, end: 20050101
  5. PEGINTERFERON-ALPHA-2B [Concomitant]
  6. RIBAVIRIN [Concomitant]
  7. PAROXETINE HCL [Concomitant]

REACTIONS (8)
  - ASTHENIA [None]
  - DIALYSIS [None]
  - HEPATIC ENCEPHALOPATHY [None]
  - JAUNDICE [None]
  - MULTI-ORGAN FAILURE [None]
  - PROTHROMBIN TIME SHORTENED [None]
  - SEPSIS [None]
  - SMOOTH MUSCLE ANTIBODY POSITIVE [None]
